FAERS Safety Report 8993577 (Version 2)
Quarter: 2013Q1

REPORT INFORMATION
  Report Type: Report from Study
  Country: US (occurrence: US)
  Receive Date: 20130102
  Receipt Date: 20130122
  Transmission Date: 20140127
  Serious: Yes (Hospitalization)
  Sender: FDA-Public Use
  Company Number: US-ACTELION-A-US2012-76849

PATIENT
  Age: 53 Year
  Sex: Male

DRUGS (2)
  1. VELETRI [Suspect]
     Indication: PULMONARY ARTERIAL HYPERTENSION
     Dosage: 33.5 NG/KG, PER MIN
     Route: 042
     Dates: start: 20110525
  2. TRACLEER [Concomitant]

REACTIONS (2)
  - Lung transplant [Recovered/Resolved]
  - Pulmonary arterial hypertension [Unknown]
